FAERS Safety Report 6697027-6 (Version None)
Quarter: 2010Q2

REPORT INFORMATION
  Report Type: 
  Country: None (occurrence: None)
  Receive Date: 20100426
  Receipt Date: 20100419
  Transmission Date: 20101027
  Serious: Yes (Hospitalization)
  Sender: FDA-Public Use
  Company Number: FR-ASTRAZENECA-2009CG00880

PATIENT
  Age: 27237 Day
  Sex: Male

DRUGS (7)
  1. MOPRAL [Suspect]
     Route: 048
     Dates: start: 20070101
  2. PENTASA [Suspect]
     Indication: CROHN'S DISEASE
     Route: 048
     Dates: start: 19980101, end: 20090408
  3. GAVISCON [Suspect]
     Indication: CROHN'S DISEASE
     Dates: start: 19980101
  4. LASIX [Suspect]
     Dates: start: 20070101
  5. APRANAX [Concomitant]
     Dates: start: 20090401
  6. LAMALINE [Concomitant]
     Dates: start: 20090401
  7. DOLIPRANE [Concomitant]
     Dates: start: 20090401

REACTIONS (1)
  - PULMONARY FIBROSIS [None]
